FAERS Safety Report 24715036 (Version 2)
Quarter: 2025Q3

REPORT INFORMATION
  Report Type: Report from Study
  Country: US (occurrence: US)
  Receive Date: 20241210
  Receipt Date: 20250803
  Transmission Date: 20251021
  Serious: Yes (Other)
  Sender: ALEXION PHARMACEUTICALS
  Company Number: US-AstraZeneca-CH-00761766A

PATIENT
  Sex: Female

DRUGS (1)
  1. OSIMERTINIB [Suspect]
     Active Substance: OSIMERTINIB
     Route: 065

REACTIONS (7)
  - Neoplasm malignant [Unknown]
  - Mental impairment [Unknown]
  - Diarrhoea [Unknown]
  - Movement disorder [Unknown]
  - Nervousness [Unknown]
  - Constipation [Unknown]
  - Speech disorder [Unknown]
